FAERS Safety Report 8187973-9 (Version None)
Quarter: 2012Q1

REPORT INFORMATION
  Report Type: 
  Country: None (occurrence: None)
  Receive Date: 20120306
  Receipt Date: 20120228
  Transmission Date: 20120608
  Serious: Yes (Death)
  Sender: FDA-Public Use
  Company Number: FR-ELI_LILLY_AND_COMPANY-FR201202003369

PATIENT
  Sex: Male

DRUGS (12)
  1. ATORVASTATIN [Concomitant]
     Dosage: 80 MG, UNK
  2. NICOTINE [Concomitant]
  3. ASPIRIN [Concomitant]
     Dosage: 75 MG, UNK
  4. BISOPROLOL FUMARATE [Concomitant]
     Dosage: 2.5 MG, UNK
  5. ZINC GLUCONATE [Concomitant]
     Dosage: UNK, UNKNOWN
     Route: 048
     Dates: end: 20120201
  6. TIORFAN [Concomitant]
     Indication: DYSPEPSIA
     Dosage: UNK
     Dates: start: 20120101
  7. EFFIENT [Suspect]
     Indication: STENT PLACEMENT
     Dosage: 10 MG, QD
     Route: 048
  8. OMACOR [Concomitant]
  9. LASIX [Concomitant]
     Dosage: 40 MG, UNK
  10. RAMIPRIL [Concomitant]
     Dosage: 1.25 MG, UNK
  11. NOVORAPID [Concomitant]
  12. GAVISCON                           /00902401/ [Concomitant]
     Indication: DYSPEPSIA
     Dosage: UNK
     Dates: start: 20120101

REACTIONS (6)
  - DRUG DOSE OMISSION [None]
  - SUDDEN DEATH [None]
  - DRUG NAME CONFUSION [None]
  - THROMBOSIS IN DEVICE [None]
  - CHEST PAIN [None]
  - DRUG DISPENSING ERROR [None]
